FAERS Safety Report 8055894-8 (Version None)
Quarter: 2012Q1

REPORT INFORMATION
  Report Type: 
  Country: None (occurrence: None)
  Receive Date: 20120119
  Receipt Date: 20120117
  Transmission Date: 20120608
  Serious: Yes (Hospitalization)
  Sender: FDA-Public Use
  Company Number: GB-ROCHE-1031476

PATIENT
  Sex: Male

DRUGS (1)
  1. XENICAL [Suspect]
     Indication: WEIGHT DECREASED

REACTIONS (1)
  - PERICARDITIS [None]
